FAERS Safety Report 9149484 (Version 1)
Quarter: 2013Q1

REPORT INFORMATION
  Report Type: Spontaneous
  Country: JP (occurrence: JP)
  Receive Date: 20130308
  Receipt Date: 20130308
  Transmission Date: 20140127
  Serious: Yes (Other)
  Sender: FDA-Public Use
  Company Number: JP-ASTELLAS-2013JP003254

PATIENT
  Age: 49 Year
  Sex: Female

DRUGS (2)
  1. PROGRAF [Suspect]
     Indication: COLITIS ULCERATIVE
     Dosage: 10 MG, UNKNOWN/D
     Route: 048
  2. PROGRAF [Suspect]
     Dosage: 6 MG, UNKNOWN/D
     Route: 048

REACTIONS (1)
  - Renal disorder [Unknown]
